FAERS Safety Report 9310473 (Version 1)
Quarter: 2013Q2

REPORT INFORMATION
  Report Type: Spontaneous
  Country: AU (occurrence: AU)
  Receive Date: 20130527
  Receipt Date: 20130527
  Transmission Date: 20140414
  Serious: Yes (Other)
  Sender: FDA-Public Use
  Company Number: PHHY2013AU052886

PATIENT
  Sex: Male

DRUGS (4)
  1. EXFORGE [Suspect]
     Dosage: 1 DF (80 MG VALS AND 5 MG AMLO) UNK
  2. EFEXOR [Concomitant]
  3. NEXIUM [Concomitant]
  4. PLAVIX [Concomitant]

REACTIONS (5)
  - Ageusia [Unknown]
  - Anosmia [Unknown]
  - Decreased appetite [Unknown]
  - Malaise [Unknown]
  - Weight decreased [Unknown]
